FAERS Safety Report 11529894 (Version 1)
Quarter: 2015Q3

REPORT INFORMATION
  Report Type: Spontaneous
  Country: PT (occurrence: PT)
  Receive Date: 20150921
  Receipt Date: 20150921
  Transmission Date: 20151125
  Serious: Yes (Death, Hospitalization)
  Sender: FDA-Public Use
  Company Number: PT-ELI_LILLY_AND_COMPANY-PT201506010010

PATIENT
  Age: 71 Year
  Sex: Male
  Weight: 65 kg

DRUGS (6)
  1. NACL [Concomitant]
     Active Substance: SODIUM CHLORIDE
     Dosage: UNK, UNKNOWN
     Route: 042
  2. ALIMTA [Suspect]
     Active Substance: PEMETREXED DISODIUM
     Indication: MESOTHELIOMA
     Dosage: 800 MG, CYCLICAL
     Route: 042
     Dates: start: 20150527, end: 20150603
  3. CIANOCOBALAMINA [Concomitant]
     Dosage: UNK, UNKNOWN
     Route: 065
     Dates: start: 20150527, end: 20150603
  4. DEXAMETASONA                       /00016001/ [Concomitant]
     Dosage: UNK
     Route: 048
     Dates: start: 20150527, end: 20150603
  5. ONDANSETROM                        /00955301/ [Concomitant]
     Dosage: UNK, UNKNOWN
     Route: 042
     Dates: start: 20150527, end: 20150603
  6. CARBOPLATINA [Concomitant]
     Indication: MESOTHELIOMA
     Dosage: UNK, UNKNOWN
     Route: 042
     Dates: start: 20150527, end: 20150603

REACTIONS (4)
  - Off label use [Unknown]
  - Sepsis [Fatal]
  - Febrile neutropenia [Fatal]
  - Respiratory tract infection [Fatal]

NARRATIVE: CASE EVENT DATE: 201506
